FAERS Safety Report 7451302 (Version 13)
Quarter: 2014Q2

REPORT INFORMATION
  Report Type: Report from Study
  Country: JP (occurrence: JP)
  Receive Date: 20100701
  Receipt Date: 20131017
  Transmission Date: 20141212
  Serious: Yes (Hospitalization)
  Sender: FDA-Public Use
  Company Number: JP-PFIZER INC-2010076776

PATIENT
  Age: 62 Year
  Sex: Female
  Weight: 47.6 kg

DRUGS (8)
  1. FLUCAM [Suspect]
     Indication: RHEUMATOID ARTHRITIS
     Dosage: 27 MG, 1X/DAY
     Route: 048
     Dates: start: 20040124
  2. METHOTREXATE SODIUM [Suspect]
     Indication: RHEUMATOID ARTHRITIS
     Dosage: 12.5 MG, WEEKLY
     Route: 048
     Dates: start: 20060707
  3. FOLIAMIN [Suspect]
     Indication: RHEUMATOID ARTHRITIS
     Dosage: 5 MG, WEEKLY
     Route: 048
     Dates: start: 20080113
  4. CALSLOT [Suspect]
     Indication: HYPERTENSION
     Dosage: 10 MG, 1X/DAY
     Route: 048
     Dates: start: 20040124
  5. FOSAMAX [Suspect]
     Indication: OSTEOPOROSIS
     Dosage: 35 MG, WEEKLY
     Route: 048
     Dates: start: 20070315
  6. BUFFERIN /JPN/ [Suspect]
     Indication: THROMBOSIS PROPHYLAXIS
     Dosage: 81 MG, 1X/DAY
     Route: 048
     Dates: start: 20040124
  7. MOHRUS [Concomitant]
     Indication: RHEUMATOID ARTHRITIS
     Dosage: 20 MG, 1X/DAY
     Route: 062
     Dates: start: 20080908
  8. TOFACITINIB/TOFACITINIB CITRATE [Suspect]
     Indication: RHEUMATOID ARTHRITIS
     Dosage: 5 MG, 2X/DAY
     Route: 048
     Dates: start: 20080826, end: 20100620

REACTIONS (2)
  - Convulsion [Recovered/Resolved]
  - Temporal lobe epilepsy [Recovering/Resolving]
